FAERS Safety Report 15080525 (Version 1)
Quarter: 2018Q2

REPORT INFORMATION
  Report Type: Spontaneous
  Country: US (occurrence: US)
  Receive Date: 20180628
  Receipt Date: 20180628
  Transmission Date: 20180711
  Serious: No
  Sender: FDA-Public Use
  Company Number: US-ASTRAZENECA-2018SE72495

PATIENT

DRUGS (1)
  1. SYMBICORT [Suspect]
     Active Substance: BUDESONIDE\FORMOTEROL FUMARATE DIHYDRATE
     Indication: NO ADVERSE EVENT
     Dosage: UNKNOWN UNKNOWN
     Route: 055

REACTIONS (4)
  - Oral candidiasis [Unknown]
  - Asthma [Unknown]
  - Hypersensitivity [Unknown]
  - Intentional product misuse [Unknown]
